FAERS Safety Report 9559670 (Version 1)
Quarter: 2013Q3

REPORT INFORMATION
  Report Type: Spontaneous
  Country: US (occurrence: None)
  Receive Date: 20130913
  Receipt Date: 20130913
  Transmission Date: 20140515
  Serious: Yes (Other)
  Sender: FDA-Public Use
  Company Number: 1000044831

PATIENT
  Age: 63 Year
  Sex: Male
  Weight: 62.1 kg

DRUGS (1)
  1. DALIRESP [Suspect]
     Indication: EMPHYSEMA
     Dosage: 500MCG (500MCG, 1 IN 1)
     Route: 048
     Dates: start: 20111003, end: 20111103

REACTIONS (2)
  - Diarrhoea [None]
  - Weight decreased [None]
